FAERS Safety Report 13728140 (Version 3)
Quarter: 2018Q3

REPORT INFORMATION
  Report Type: Spontaneous
  Country: US (occurrence: US)
  Receive Date: 20170707
  Receipt Date: 20180727
  Transmission Date: 20181010
  Serious: Yes (Hospitalization, Other)
  Sender: FDA-Public Use
  Company Number: US-AUROBINDO-AUR-APL-2017-36574

PATIENT
  Age: 27 Year
  Sex: Female

DRUGS (1)
  1. ACETAMINOPHEN. [Suspect]
     Active Substance: ACETAMINOPHEN
     Indication: TOOTHACHE
     Dosage: 12.5 GRAM, APPROXIMATELY 12.5 G ACETAMINOPHEN OVER 24 HOURS
     Route: 048

REACTIONS (12)
  - Accidental overdose [Unknown]
  - Haemorrhage [Unknown]
  - Abdominal pain [Unknown]
  - Hepatocellular injury [Recovered/Resolved]
  - Alanine aminotransferase increased [Recovered/Resolved]
  - Uterine contractions abnormal [Recovered/Resolved]
  - Premature labour [Unknown]
  - Coagulopathy [Recovering/Resolving]
  - Maternal exposure during pregnancy [Unknown]
  - Aspartate aminotransferase increased [Recovered/Resolved]
  - Premature separation of placenta [Unknown]
  - Toxicity to various agents [Unknown]
